FAERS Safety Report 4846314-2 (Version None)
Quarter: 2005Q4

REPORT INFORMATION
  Report Type: 
  Country: None (occurrence: None)
  Receive Date: 20051206
  Receipt Date: 20050831
  Transmission Date: 20060501
  Serious: Yes (Life-Threatening, Hospitalization)
  Sender: FDA-Public Use
  Company Number: US-ROCHE-416447

PATIENT
  Age: 28 Year
  Sex: Female
  Weight: 61 kg

DRUGS (2)
  1. PEGASYS [Suspect]
     Indication: HEPATITIS C
     Dosage: ROUTE: INJ, STRENGTH REPORTED AS 180MCG/ML (1 ML)
     Route: 050
     Dates: start: 20050206, end: 20050714
  2. COPEGUS [Suspect]
     Indication: HEPATITIS C
     Dosage: DOSAGE REGIMEN REPORTED AS 3 TAB QAM, 2 TAB QPM
     Route: 048
     Dates: start: 20050206, end: 20050714

REACTIONS (5)
  - FATIGUE [None]
  - NAUSEA [None]
  - ORTHOSTATIC HYPOTENSION [None]
  - PANCYTOPENIA [None]
  - VOMITING [None]
